FAERS Safety Report 11782274 (Version 7)
Quarter: 2016Q4

REPORT INFORMATION
  Report Type: Report from Study
  Country: US (occurrence: US)
  Receive Date: 20151127
  Receipt Date: 20161014
  Transmission Date: 20170206
  Serious: Yes (Other)
  Sender: FDA-Public Use
  Company Number: US-UCBSA-2015030874

PATIENT
  Age: 74 Year
  Sex: Female
  Weight: 44 kg

DRUGS (3)
  1. FIORICET [Concomitant]
     Active Substance: ACETAMINOPHEN\BUTALBITAL\CAFFEINE
     Indication: MIGRAINE
     Dosage: 1 DF, AS NEEDED (PRN)
     Route: 048
  2. MULTIVITAMINS [Concomitant]
     Active Substance: VITAMINS
     Indication: SUPPLEMENTATION THERAPY
     Dosage: DAILY
     Route: 048
  3. CERTOLIZUMAB PEGOL [Suspect]
     Active Substance: CERTOLIZUMAB PEGOL
     Indication: CROHN^S DISEASE
     Dosage: 200 MG, EV 2 WEEKS(QOW) (EXPIRY DATE: JUN-2016 AND MAR-2017 ) (NDC NO-50474-710-79, 50474-710-81)
     Route: 058
     Dates: end: 20151120

REACTIONS (4)
  - Influenza [Not Recovered/Not Resolved]
  - Road traffic accident [Recovering/Resolving]
  - Off label use [Unknown]
  - Limb injury [Recovering/Resolving]

NARRATIVE: CASE EVENT DATE: 20150716
